FAERS Safety Report 18786083 (Version 3)
Quarter: 2021Q2

REPORT INFORMATION
  Report Type: Spontaneous
  Country: US (occurrence: US)
  Receive Date: 20210125
  Receipt Date: 20210414
  Transmission Date: 20210717
  Serious: No
  Sender: FDA-Public Use
  Company Number: US-ASTRAZENECA-2021A011180

PATIENT
  Age: 77 Year
  Sex: Male
  Weight: 80.7 kg

DRUGS (3)
  1. METFORMIN EXTENDED RELEASE [Concomitant]
     Active Substance: METFORMIN HYDROCHLORIDE
     Indication: DIABETES MELLITUS
     Route: 048
  2. METFORMIN EXTENDED RELEASE [Concomitant]
     Active Substance: METFORMIN HYDROCHLORIDE
     Indication: DIABETES MELLITUS
     Route: 048
  3. BYDUREON BCISE [Suspect]
     Active Substance: EXENATIDE
     Indication: DIABETES MELLITUS
     Route: 058
     Dates: start: 20180804, end: 20200415

REACTIONS (6)
  - Injection site haemorrhage [Not Recovered/Not Resolved]
  - Incorrect dose administered by device [Unknown]
  - Glycosylated haemoglobin increased [Not Recovered/Not Resolved]
  - Drug dose omission by device [Unknown]
  - Injection site injury [Unknown]
  - Device leakage [Unknown]
